FAERS Safety Report 4381999-9 (Version None)
Quarter: 2004Q2

REPORT INFORMATION
  Report Type: 
  Country: None (occurrence: None)
  Receive Date: 20040615
  Receipt Date: 20040601
  Transmission Date: 20050107
  Serious: Yes (Hospitalization, Other)
  Sender: FDA-Public Use
  Company Number: CPVP2004FRA5171

PATIENT
  Age: 40 Year
  Sex: Female

DRUGS (3)
  1. GUTRON      (MIDODRINE) [Suspect]
     Indication: ORTHOSTATIC HYPOTENSION
     Dosage: 5 MG
     Route: 048
  2. INEXIUM [Concomitant]
  3. INSULIN [Concomitant]

REACTIONS (2)
  - CHEST PAIN [None]
  - FEELING ABNORMAL [None]
